FAERS Safety Report 12812933 (Version 6)
Quarter: 2017Q4

REPORT INFORMATION
  Report Type: Spontaneous
  Country: US (occurrence: US)
  Receive Date: 20161005
  Receipt Date: 20171116
  Transmission Date: 20180320
  Serious: Yes (Death, Hospitalization)
  Sender: FDA-Public Use
  Company Number: US-ACTELION-A-NJ2016-143115

PATIENT
  Age: 40 Year
  Sex: Female
  Weight: 80.27 kg

DRUGS (5)
  1. OPSUMIT [Suspect]
     Active Substance: MACITENTAN
     Indication: PULMONARY HYPERTENSION
     Dosage: 10 MG, QD
     Route: 048
     Dates: start: 20160426
  2. AMLODIPINE [Concomitant]
     Active Substance: AMLODIPINE BESYLATE
  3. ADCIRCA [Concomitant]
     Active Substance: TADALAFIL
  4. WARFARIN [Concomitant]
     Active Substance: WARFARIN
  5. REMODULIN [Concomitant]
     Active Substance: TREPROSTINIL

REACTIONS (11)
  - Fluid overload [Unknown]
  - Pulmonary haemorrhage [Unknown]
  - Oxygen saturation decreased [Unknown]
  - Pneumonia [Unknown]
  - Death [Fatal]
  - Infection [Unknown]
  - Atrial fibrillation [Unknown]
  - Pain [Unknown]
  - Dyspnoea [Unknown]
  - Gait inability [Unknown]
  - Weight decreased [Unknown]

NARRATIVE: CASE EVENT DATE: 20171106
